FAERS Safety Report 9916499 (Version 2)
Quarter: 2014Q1

REPORT INFORMATION
  Report Type: Report from Study
  Country: GB (occurrence: GB)
  Receive Date: 20140221
  Receipt Date: 20140305
  Transmission Date: 20141002
  Serious: Yes (Other)
  Sender: FDA-Public Use
  Company Number: GB-INCYTE CORPORATION-2014IN000379

PATIENT
  Age: 66 Year
  Sex: Male

DRUGS (5)
  1. INC424 [Suspect]
     Indication: MYELOFIBROSIS
     Dosage: 4 DF, UNK
     Route: 065
  2. INC424 [Suspect]
     Dosage: 2 DF, UNK
     Route: 065
  3. INC424 [Suspect]
     Dosage: 3 DF, UNK
     Route: 065
     Dates: start: 2012
  4. SIMVASTATIN [Concomitant]
  5. ALLOPURINOL [Concomitant]

REACTIONS (3)
  - Platelet count decreased [Recovered/Resolved]
  - Splenomegaly [Recovered/Resolved]
  - Fatigue [Recovered/Resolved]
